FAERS Safety Report 9251272 (Version 1)
Quarter: 2013Q2

REPORT INFORMATION
  Report Type: Spontaneous
  Country: US (occurrence: US)
  Receive Date: 20130424
  Receipt Date: 20130424
  Transmission Date: 20140414
  Serious: Yes (Hospitalization)
  Sender: FDA-Public Use
  Company Number: US-LUNDBECK-DKLU1089384

PATIENT
  Age: 3 Year
  Sex: Male

DRUGS (7)
  1. ONFI [Suspect]
     Indication: CONVULSION
     Dates: start: 20130213, end: 20130219
  2. ONFI [Suspect]
     Dates: start: 20130220, end: 20130301
  3. DEPAKOTE [Concomitant]
     Indication: CONVULSION
     Dates: start: 20120928
  4. KEPPRA [Concomitant]
     Indication: CONVULSION
     Dates: start: 201301
  5. PULMICORT [Concomitant]
     Indication: ASTHMA
     Dosage: 2.5 ML
     Dates: start: 2009
  6. PREVACID [Concomitant]
     Indication: GASTROOESOPHAGEAL REFLUX DISEASE
     Dosage: 5 ML
     Dates: start: 2009
  7. CARNITOR [Concomitant]
     Indication: VITAMIN SUPPLEMENTATION
     Dates: start: 2012

REACTIONS (4)
  - Atelectasis [Unknown]
  - Lobar pneumonia [Unknown]
  - Drooling [Recovered/Resolved]
  - Sedation [Recovered/Resolved]
